FAERS Safety Report 16498655 (Version 1)
Quarter: 2019Q2

REPORT INFORMATION
  Report Type: Report from Study
  Country: US (occurrence: US)
  Receive Date: 20190629
  Receipt Date: 20190629
  Transmission Date: 20190711
  Serious: Yes (Other)
  Sender: FDA-Public Use
  Company Number: US-UCBSA-2019027668

PATIENT
  Sex: Female

DRUGS (4)
  1. OXCARBAZEPINE. [Concomitant]
     Active Substance: OXCARBAZEPINE
     Indication: PRODUCT USED FOR UNKNOWN INDICATION
     Dosage: 600MG IN MORNING 1500MG AT NIGHT, 2X/DAY (BID)
     Route: 064
     Dates: start: 20190416, end: 201906
  2. LEVETIRACETAM. [Suspect]
     Active Substance: LEVETIRACETAM
     Indication: PARTIAL SEIZURES
     Dosage: 2000 MILLIGRAM, 2X/DAY (BID)
     Route: 064
     Dates: start: 20190416, end: 201906
  3. VIMPAT [Suspect]
     Active Substance: LACOSAMIDE
     Indication: PRODUCT USED FOR UNKNOWN INDICATION
     Dosage: 100MG IN MORNING 200MG IN NIGHT, 2X/DAY (BID)
     Route: 064
     Dates: start: 20190416, end: 201906
  4. TOPIRAMATE. [Concomitant]
     Active Substance: TOPIRAMATE
     Indication: PRODUCT USED FOR UNKNOWN INDICATION
     Dosage: 50MG DAILY
     Route: 064
     Dates: start: 20190416, end: 201906

REACTIONS (2)
  - Small for dates baby [Unknown]
  - Maternal exposure during pregnancy [Unknown]

NARRATIVE: CASE EVENT DATE: 20190416
